FAERS Safety Report 5875765-2 (Version None)
Quarter: 2008Q3

REPORT INFORMATION
  Report Type: 
  Country: None (occurrence: None)
  Receive Date: 20080908
  Receipt Date: 20080827
  Transmission Date: 20090109
  Serious: Yes (Death, Hospitalization)
  Sender: FDA-Public Use
  Company Number: 2008BI010093

PATIENT
  Age: 32 Year
  Sex: Female
  Weight: 86.1834 kg

DRUGS (2)
  1. AVONEX [Suspect]
     Indication: MULTIPLE SCLEROSIS
     Dosage: 30 UG; QW; IM
     Route: 030
     Dates: start: 20040101, end: 20070501
  2. RISPERDAL [Concomitant]

REACTIONS (8)
  - CARDIAC ARREST [None]
  - LOCALISED INFECTION [None]
  - LOSS OF CONSCIOUSNESS [None]
  - OVERDOSE [None]
  - PULMONARY EMBOLISM [None]
  - RED BLOOD CELL COUNT DECREASED [None]
  - VENOUS THROMBOSIS [None]
  - WHITE BLOOD CELL COUNT INCREASED [None]
